FAERS Safety Report 17982317 (Version 1)
Quarter: 2020Q3

REPORT INFORMATION
  Report Type: Spontaneous
  Country: CA (occurrence: CA)
  Receive Date: 20200706
  Receipt Date: 20200706
  Transmission Date: 20201103
  Serious: Yes (Hospitalization, Other)
  Sender: FDA-Public Use
  Company Number: CA-AMGEN-CANSP2020105973

PATIENT
  Age: 64 Year
  Sex: Female

DRUGS (9)
  1. PREDNISONE. [Concomitant]
     Active Substance: PREDNISONE
     Indication: PRODUCT USED FOR UNKNOWN INDICATION
     Dosage: UNK
  2. SEEBRI BREEZHALER [Suspect]
     Active Substance: GLYCOPYRROLATE
     Indication: PULMONARY FIBROSIS
     Dosage: UNK
     Route: 065
  3. ALVESCO [Concomitant]
     Active Substance: CICLESONIDE
     Indication: PRODUCT USED FOR UNKNOWN INDICATION
     Dosage: UNK
  4. ENBREL [Suspect]
     Active Substance: ETANERCEPT
     Indication: ARTHRITIS
     Dosage: UNK UNK, QWK
     Route: 065
  5. SYMBICORT [Concomitant]
     Active Substance: BUDESONIDE\FORMOTEROL FUMARATE DIHYDRATE
     Indication: PRODUCT USED FOR UNKNOWN INDICATION
     Dosage: UNK
  6. VENTOLIN [Concomitant]
     Active Substance: ALBUTEROL SULFATE
     Indication: PRODUCT USED FOR UNKNOWN INDICATION
     Dosage: UNK
  7. OMALIZUMAB. [Suspect]
     Active Substance: OMALIZUMAB
     Indication: ASTHMA
     Dosage: 2 DOSAGE FORM
     Route: 058
  8. OMALIZUMAB. [Suspect]
     Active Substance: OMALIZUMAB
     Dosage: 375 MILLIGRAM, Q2WK
     Route: 058
  9. REACTINE [CETIRIZINE HYDROCHLORIDE] [Concomitant]
     Active Substance: CETIRIZINE HYDROCHLORIDE
     Indication: PRODUCT USED FOR UNKNOWN INDICATION
     Dosage: UNK

REACTIONS (44)
  - Atelectasis [Recovered/Resolved]
  - Cataract [Recovered/Resolved]
  - Sleep apnoea syndrome [Recovered/Resolved]
  - Nasopharyngitis [Recovered/Resolved]
  - Rhinorrhoea [Recovered/Resolved]
  - Skin cancer [Recovered/Resolved]
  - Allergy to animal [Recovered/Resolved]
  - Incorrect product dosage form administered [Recovered/Resolved]
  - Nephrolithiasis [Recovered/Resolved]
  - Pulmonary fibrosis [Recovered/Resolved]
  - Pulmonary hypertension [Recovered/Resolved]
  - Pulmonary infarction [Recovered/Resolved]
  - Restrictive pulmonary disease [Recovered/Resolved]
  - Cataract operation complication [Recovered/Resolved]
  - Dyspnoea [Recovered/Resolved]
  - Food intolerance [Recovered/Resolved]
  - Fracture [Recovered/Resolved]
  - Lacrimation increased [Recovered/Resolved]
  - Oesophageal rupture [Recovered/Resolved]
  - Oral candidiasis [Recovered/Resolved]
  - Pulmonary haemorrhage [Recovered/Resolved]
  - Asthma [Recovered/Resolved]
  - Concomitant disease aggravated [Recovered/Resolved]
  - Fatigue [Recovered/Resolved]
  - Pneumonia viral [Recovered/Resolved]
  - Septic shock [Recovered/Resolved]
  - Fall [Recovered/Resolved]
  - Pneumonia [Recovered/Resolved]
  - Product preparation issue [Recovered/Resolved]
  - Coma [Recovered/Resolved]
  - Pain [Recovered/Resolved]
  - Arthritis [Recovered/Resolved]
  - Bradycardia [Recovered/Resolved]
  - Cerebral haemorrhage [Recovered/Resolved]
  - Contusion [Recovered/Resolved]
  - Cough [Recovered/Resolved]
  - Forced expiratory volume decreased [Recovered/Resolved]
  - Haematuria [Recovered/Resolved]
  - Hypersensitivity [Recovered/Resolved]
  - Mobility decreased [Recovered/Resolved]
  - Product use in unapproved indication [Recovered/Resolved]
  - Secretion discharge [Recovered/Resolved]
  - Vomiting [Recovered/Resolved]
  - Wheezing [Recovered/Resolved]
